FAERS Safety Report 18498277 (Version 3)
Quarter: 2021Q3

REPORT INFORMATION
  Report Type: Spontaneous
  Country: US (occurrence: US)
  Receive Date: 20201112
  Receipt Date: 20210930
  Transmission Date: 20211014
  Serious: Yes (Other)
  Sender: FDA-Public Use
  Company Number: US-PURDUE-USA-2020-0173361

PATIENT
  Sex: Female

DRUGS (3)
  1. OXYCODONE HYDROCHLORIDE (SIMILAR TO NDA 22?272) [Suspect]
     Active Substance: OXYCODONE HYDROCHLORIDE
     Indication: PRODUCT USED FOR UNKNOWN INDICATION
     Dosage: UNK
     Route: 048
  2. OXY IR [Suspect]
     Active Substance: OXYCODONE HYDROCHLORIDE
     Indication: PRODUCT USED FOR UNKNOWN INDICATION
     Dosage: UNK
     Route: 065
  3. OXYCONTIN [Suspect]
     Active Substance: OXYCODONE HYDROCHLORIDE
     Indication: PRODUCT USED FOR UNKNOWN INDICATION
     Dosage: UNK
     Route: 048

REACTIONS (16)
  - Dilatation intrahepatic duct acquired [Unknown]
  - Aortic valve incompetence [Unknown]
  - Pancreatic duct dilatation [Unknown]
  - Drug dependence [Unknown]
  - Aortic arteriosclerosis [Unknown]
  - Thrombosis [Unknown]
  - Atrial enlargement [Unknown]
  - Cardiac disorder [Unknown]
  - Diastolic dysfunction [Unknown]
  - Ampulla of Vater stenosis [Unknown]
  - Ventricular hypertrophy [Unknown]
  - Iliac artery disease [Unknown]
  - Atrial flutter [Unknown]
  - Spinal deformity [Unknown]
  - Pain [Unknown]
  - Atrial fibrillation [Unknown]
